FAERS Safety Report 19249441 (Version 1)
Quarter: 2021Q2

REPORT INFORMATION
  Report Type: Spontaneous
  Country: US (occurrence: US)
  Receive Date: 20210512
  Receipt Date: 20210512
  Transmission Date: 20210717
  Serious: Yes (Other)
  Sender: FDA-Public Use
  Company Number: US-TAKEDA-2021TUS029020

PATIENT
  Age: 24 Year
  Sex: Male

DRUGS (13)
  1. TOFA [Concomitant]
     Dosage: 10 MILLIGRAM, BID
     Route: 048
  2. VEDOLIZUMAB [Suspect]
     Active Substance: VEDOLIZUMAB
     Indication: COLITIS ULCERATIVE
     Route: 065
  3. INFLIXIMAB [Concomitant]
     Active Substance: INFLIXIMAB
     Dosage: 10 MILLIGRAM/KILOGRAM, Q8WEEKS
     Route: 065
  4. CYCLOSPORINE. [Concomitant]
     Active Substance: CYCLOSPORINE
     Dosage: 200 MILLIGRAM, BID
     Route: 048
  5. BUDESONIDE. [Concomitant]
     Active Substance: BUDESONIDE
     Indication: LIVER DISORDER
     Dosage: 6 MILLIGRAM, QD
     Route: 065
  6. 476 (MESALAZINE/MESALAMINE) [Suspect]
     Active Substance: MESALAMINE
     Indication: COLITIS ULCERATIVE
     Route: 065
  7. VEDOLIZUMAB [Suspect]
     Active Substance: VEDOLIZUMAB
     Dosage: UNK, MONTHLY
     Route: 065
  8. AZATHIOPRINE. [Concomitant]
     Active Substance: AZATHIOPRINE
     Indication: LIVER DISORDER
     Dosage: UNK
     Route: 065
  9. CYCLOSPORINE. [Concomitant]
     Active Substance: CYCLOSPORINE
     Dosage: 3 MILLIGRAM/KILOGRAM
     Route: 042
  10. PREDNISONE. [Concomitant]
     Active Substance: PREDNISONE
     Indication: LIVER DISORDER
     Route: 065
  11. VEDOLIZUMAB [Suspect]
     Active Substance: VEDOLIZUMAB
     Dosage: UNK, Q8WEEKS
     Route: 065
  12. INFLIXIMAB [Concomitant]
     Active Substance: INFLIXIMAB
     Dosage: 10 MILLIGRAM/KILOGRAM, Q4WEEKS
     Route: 065
  13. CYCLOSPORINE. [Concomitant]
     Active Substance: CYCLOSPORINE
     Dosage: 200 MILLIGRAM, BID
     Route: 042

REACTIONS (2)
  - Colitis ulcerative [Unknown]
  - Therapeutic product effect incomplete [Unknown]
